FAERS Safety Report 6524737-3 (Version None)
Quarter: 2010Q1

REPORT INFORMATION
  Report Type: 
  Country: None (occurrence: None)
  Receive Date: 20100104
  Receipt Date: 20091228
  Transmission Date: 20100710
  Serious: Yes (Life-Threatening)
  Sender: FDA-Public Use
  Company Number: FR-ASTRAZENECA-2009SE33638

PATIENT
  Age: 15290 Day
  Sex: Female

DRUGS (5)
  1. DIPRIVAN [Suspect]
     Indication: INDUCTION OF ANAESTHESIA
     Dosage: 1G/100 ML
     Route: 042
     Dates: start: 20091022, end: 20091022
  2. SUFENTANIL CITRATE [Suspect]
     Indication: INDUCTION OF ANAESTHESIA
     Route: 042
     Dates: start: 20091022, end: 20091022
  3. NIMBEX [Suspect]
     Route: 042
     Dates: start: 20091022, end: 20091022
  4. CEFAMANDOLE SODIUM [Suspect]
     Route: 042
     Dates: start: 20091022, end: 20091022
  5. KARDEGIC [Concomitant]
     Route: 048

REACTIONS (2)
  - CIRCULATORY COLLAPSE [None]
  - RASH [None]
